FAERS Safety Report 12274544 (Version 1)
Quarter: 2016Q2

REPORT INFORMATION
  Report Type: Spontaneous
  Country: US (occurrence: US)
  Receive Date: 20160415
  Receipt Date: 20160415
  Transmission Date: 20160815
  Serious: No
  Sender: FDA-Public Use
  Company Number: US-ALLERGAN-1505752US

PATIENT
  Sex: Female

DRUGS (1)
  1. LATISSE [Suspect]
     Active Substance: BIMATOPROST
     Indication: GROWTH OF EYELASHES
     Dosage: 1 APP PER EYE, DAILY
     Route: 047

REACTIONS (4)
  - Eye pruritus [Unknown]
  - Ocular hyperaemia [Recovered/Resolved with Sequelae]
  - Eye oedema [Recovered/Resolved with Sequelae]
  - Eye irritation [Recovered/Resolved with Sequelae]
